FAERS Safety Report 24110777 (Version 1)
Quarter: 2024Q3

REPORT INFORMATION
  Report Type: Spontaneous
  Country: US (occurrence: None)
  Receive Date: 20240717
  Receipt Date: 20240717
  Transmission Date: 20241017
  Serious: Yes (unspecified)
  Sender: Public
  Company Number: None

PATIENT
  Age: 59 Year
  Sex: Female
  Weight: 63 kg

DRUGS (3)
  1. DIETARY SUPPLEMENT [Suspect]
     Active Substance: DIETARY SUPPLEMENT
     Indication: Arthritis
     Dosage: OTHER QUANTITY : 1 TABLET(S);?FREQUENCY : DAILY;?
     Route: 048
     Dates: start: 20231001, end: 20240430
  2. DICLOFENAC [Suspect]
     Active Substance: DICLOFENAC
  3. Womens Multi Vitamin [Concomitant]

REACTIONS (6)
  - Abdominal pain upper [None]
  - Diarrhoea [None]
  - Fatigue [None]
  - Dark circles under eyes [None]
  - Product formulation issue [None]
  - Cardiac disorder [None]

NARRATIVE: CASE EVENT DATE: 20240301
